FAERS Safety Report 4452350-0 (Version None)
Quarter: 2004Q3

REPORT INFORMATION
  Report Type: 
  Country: None (occurrence: None)
  Receive Date: 20040917
  Receipt Date: 20040907
  Transmission Date: 20050211
  Serious: Yes (Hospitalization)
  Sender: FDA-Public Use
  Company Number: 2004SE05006

PATIENT
  Age: 58 Year
  Sex: Male
  Weight: 70 kg

DRUGS (4)
  1. BELOC ZOK [Suspect]
     Indication: CARDIAC FAILURE CONGESTIVE
     Dates: start: 20040817
  2. CORASPIN [Concomitant]
  3. PLAVIX [Concomitant]
  4. ACCUZIDE [Concomitant]

REACTIONS (1)
  - LUNG INFECTION [None]
